FAERS Safety Report 6751859-4 (Version None)
Quarter: 2010Q2

REPORT INFORMATION
  Report Type: 
  Country: None (occurrence: None)
  Receive Date: 20100602
  Receipt Date: 20100524
  Transmission Date: 20101027
  Serious: Yes (Hospitalization)
  Sender: FDA-Public Use
  Company Number: ES-JNJFOC-20100509075

PATIENT
  Age: 9 Year
  Sex: Female

DRUGS (5)
  1. CONCERTA [Suspect]
     Indication: OPPOSITIONAL DEFIANT DISORDER
     Route: 048
  2. CONCERTA [Suspect]
     Indication: ATTENTION DEFICIT/HYPERACTIVITY DISORDER
     Route: 048
  3. RISPERDAL [Suspect]
     Indication: OPPOSITIONAL DEFIANT DISORDER
     Route: 048
  4. RISPERDAL [Suspect]
     Indication: ATTENTION DEFICIT/HYPERACTIVITY DISORDER
     Route: 048
  5. GONAPEPTYL DEPOT [Concomitant]
     Indication: PRECOCIOUS PUBERTY
     Route: 065

REACTIONS (2)
  - ATRIAL TACHYCARDIA [None]
  - OFF LABEL USE [None]
